FAERS Safety Report 21699935 (Version 1)
Quarter: 2022Q4

REPORT INFORMATION
  Report Type: Spontaneous
  Country: CN (occurrence: CN)
  Receive Date: 20221208
  Receipt Date: 20221208
  Transmission Date: 20230113
  Serious: Yes (Other)
  Sender: FDA-Public Use
  Company Number: CN-ELI_LILLY_AND_COMPANY-CN202211013139

PATIENT
  Age: 30 Year
  Sex: Female
  Weight: 47 kg

DRUGS (4)
  1. BARICITINIB [Suspect]
     Active Substance: BARICITINIB
     Indication: Rheumatoid arthritis
     Dosage: 2 MG, DAILY
     Route: 048
     Dates: start: 20221027, end: 20221115
  2. TEPRENONE [Suspect]
     Active Substance: TEPRENONE
     Indication: Abdominal discomfort
     Dosage: 50 MG, TID
     Route: 048
     Dates: start: 20221019, end: 20221115
  3. HYDROXYCHLOROQUINE SULFATE [Concomitant]
     Active Substance: HYDROXYCHLOROQUINE SULFATE
     Indication: Rheumatoid arthritis
     Dosage: 0.1 G, BID
     Route: 048
     Dates: start: 20221024, end: 20221120
  4. PREDNISONE ACETATE [Concomitant]
     Active Substance: PREDNISONE ACETATE
     Indication: Rheumatoid arthritis
     Dosage: 5 MG, BID
     Route: 048
     Dates: start: 20221019, end: 20221120

REACTIONS (1)
  - Rash pruritic [Recovering/Resolving]

NARRATIVE: CASE EVENT DATE: 20221108
